FAERS Safety Report 15247648 (Version 1)
Quarter: 2018Q3

REPORT INFORMATION
  Report Type: Spontaneous
  Country: US (occurrence: US)
  Receive Date: 20180807
  Receipt Date: 20180807
  Transmission Date: 20181010
  Serious: Yes (Other)
  Sender: FDA-Public Use
  Company Number: US-BRISTOL-MYERS SQUIBB COMPANY-BMS-2018-072673

PATIENT
  Sex: Female
  Weight: 57.14 kg

DRUGS (2)
  1. METOPROLOL. [Concomitant]
     Active Substance: METOPROLOL
     Indication: BLOOD PRESSURE MEASUREMENT
     Dosage: 12.5 MG, DAILY
     Route: 065
     Dates: end: 201801
  2. ELIQUIS [Suspect]
     Active Substance: APIXABAN
     Indication: CEREBROVASCULAR ACCIDENT
     Dosage: 2.5 MG, BID
     Route: 048
     Dates: start: 201801

REACTIONS (2)
  - Haemorrhage [Recovered/Resolved]
  - Contusion [Recovered/Resolved with Sequelae]
